FAERS Safety Report 26038150 (Version 6)
Quarter: 2025Q4

REPORT INFORMATION
  Report Type: Spontaneous
  Country: US (occurrence: US)
  Receive Date: 20251113
  Receipt Date: 20251125
  Transmission Date: 20260117
  Serious: Yes (Other)
  Sender: IPSEN BIOPHARMACEUTICALS, INC.
  Company Number: US-IPSEN Group, Research and Development-2025-27587

PATIENT
  Age: 22 Year
  Sex: Female
  Weight: 65 kg

DRUGS (16)
  1. TAZVERIK [Suspect]
     Active Substance: TAZEMETOSTAT HYDROBROMIDE
     Indication: Neurofibrosarcoma
     Dosage: 800MG, TWICE DAILY
     Route: 048
     Dates: start: 20251008, end: 20251111
  2. TAZVERIK [Suspect]
     Active Substance: TAZEMETOSTAT HYDROBROMIDE
     Indication: Off label use
  3. ALBUTEROL SULFATE [Concomitant]
     Active Substance: ALBUTEROL SULFATE
  4. ALPRAZOLAM [Concomitant]
     Active Substance: ALPRAZOLAM
     Route: 048
  5. AMBIEN [Concomitant]
     Active Substance: ZOLPIDEM TARTRATE
     Route: 048
  6. PROCHLORPERAZINE MALEATE [Concomitant]
     Active Substance: PROCHLORPERAZINE MALEATE
     Route: 048
  7. GRANISETRON HYDROCHLORIDE [Concomitant]
     Active Substance: GRANISETRON HYDROCHLORIDE
     Route: 048
  8. GUAIFENESIN AND CODEINE PHOSPHATE [Concomitant]
     Active Substance: CODEINE PHOSPHATE\GUAIFENESIN
     Dosage: ORAL SOLUTION 1
     Route: 048
  9. HYDROMORPHONE HCL [Concomitant]
     Active Substance: HYDROMORPHONE HYDROCHLORIDE
     Dosage: 2 MG
     Route: 048
  10. LIDOCAINE\PRILOCAINE [Concomitant]
     Active Substance: LIDOCAINE\PRILOCAINE
     Dosage: EXTERNAL CREAM
  11. MIRALAX [Concomitant]
     Active Substance: POLYETHYLENE GLYCOL 3350
     Dosage: ORAL PACKET 17 GM
     Route: 048
  12. MIRTAZAPINE [Concomitant]
     Active Substance: MIRTAZAPINE
     Dosage: 15MG
     Route: 048
  13. ONDANSETRON HYDROCHLORIDE [Concomitant]
     Active Substance: ONDANSETRON HYDROCHLORIDE
     Dosage: 8 MG
     Route: 048
  14. PEPCID [Concomitant]
     Active Substance: FAMOTIDINE
     Route: 048
  15. XANAX [Concomitant]
     Active Substance: ALPRAZOLAM
     Dosage: 1MG
     Route: 048
  16. FENTANYL [Concomitant]
     Active Substance: FENTANYL
     Dosage: TRANSDERMAL PATCH 72 HOUR

REACTIONS (9)
  - Neuropathy peripheral [Unknown]
  - Hospice care [Unknown]
  - Nausea [Recovering/Resolving]
  - Vomiting [Recovering/Resolving]
  - Diarrhoea [Recovering/Resolving]
  - Platelet count decreased [Recovering/Resolving]
  - White blood cell count decreased [Recovering/Resolving]
  - Muscle twitching [Unknown]
  - Off label use [Unknown]

NARRATIVE: CASE EVENT DATE: 20250101
